FAERS Safety Report 18117413 (Version 6)
Quarter: 2024Q3

REPORT INFORMATION
  Report Type: Spontaneous
  Country: CA (occurrence: CA)
  Receive Date: 20200806
  Receipt Date: 20240809
  Transmission Date: 20241017
  Serious: Yes (Death, Life-Threatening, Hospitalization, Other)
  Sender: MERCK
  Company Number: CA-009507513-2008CAN001403

PATIENT
  Age: 85 Year
  Sex: Male

DRUGS (4)
  1. INVANZ [Suspect]
     Active Substance: ERTAPENEM SODIUM
     Indication: Localised infection
     Dosage: UNK
     Route: 042
     Dates: start: 20190603, end: 20190612
  2. CEPHALEXIN MONOHYDRATE [Suspect]
     Active Substance: CEPHALEXIN MONOHYDRATE
     Indication: Localised infection
     Dosage: TO BE TAKEN FOR 10 DAYS, 4 TIMES A DAY.
     Route: 048
     Dates: start: 20190522, end: 20190603
  3. NIFEDIPINE [Concomitant]
     Active Substance: NIFEDIPINE
     Dosage: DOSAGE FORM: NOT SPECIFIED
  4. NIFEDIPINE [Concomitant]
     Active Substance: NIFEDIPINE
     Indication: Hypertension
     Dosage: UNK
     Route: 048
     Dates: start: 1992

REACTIONS (13)
  - Abdominal discomfort [Fatal]
  - Asthenia [Fatal]
  - Dehydration [Fatal]
  - Diarrhoea [Fatal]
  - Drug interaction [Fatal]
  - Dyspnoea [Fatal]
  - Headache [Fatal]
  - Hypersomnia [Fatal]
  - Hypotension [Fatal]
  - Lethargy [Fatal]
  - Loss of consciousness [Fatal]
  - Malaise [Fatal]
  - Unresponsive to stimuli [Fatal]

NARRATIVE: CASE EVENT DATE: 20190605
